FAERS Safety Report 14236144 (Version 9)
Quarter: 2018Q2

REPORT INFORMATION
  Report Type: Report from Study
  Country: ZA (occurrence: ZA)
  Receive Date: 20171129
  Receipt Date: 20180511
  Transmission Date: 20180711
  Serious: Yes (Death, Hospitalization)
  Sender: FDA-Public Use
  Company Number: PHHY2017ZA173984

PATIENT
  Age: 46 Year
  Sex: Male
  Weight: 94 kg

DRUGS (9)
  1. ENTRESTO [Suspect]
     Active Substance: SACUBITRIL\VALSARTAN
     Dosage: 1 DF, UNK (24 MG SACUBITRIL, 26 MG VALSARTAN)
     Route: 048
  2. ENTRESTO [Suspect]
     Active Substance: SACUBITRIL\VALSARTAN
     Indication: PRODUCT USED FOR UNKNOWN INDICATION
     Dosage: 25 MG (50 MG (24 MG SACUBITRIL, 26 MG VALSARTAN)), Q12H
     Route: 048
  3. ECOTRIN [Concomitant]
     Active Substance: ASPIRIN
     Indication: PRODUCT USED FOR UNKNOWN INDICATION
     Route: 065
  4. DIGOXIN. [Concomitant]
     Active Substance: DIGOXIN
     Indication: PRODUCT USED FOR UNKNOWN INDICATION
     Route: 065
  5. ENTRESTO [Suspect]
     Active Substance: SACUBITRIL\VALSARTAN
     Dosage: 50 MG, QD
     Route: 065
  6. LASIX [Concomitant]
     Active Substance: FUROSEMIDE
     Indication: PRODUCT USED FOR UNKNOWN INDICATION
     Route: 065
  7. CLOPIDOGREL [Concomitant]
     Active Substance: CLOPIDOGREL BISULFATE
     Indication: PRODUCT USED FOR UNKNOWN INDICATION
     Route: 065
  8. SPIRONOLACTONE SANDOZ [Concomitant]
     Active Substance: SPIRONOLACTONE
     Indication: PRODUCT USED FOR UNKNOWN INDICATION
     Route: 065
  9. CORTEC [Concomitant]
     Indication: PRODUCT USED FOR UNKNOWN INDICATION
     Route: 065

REACTIONS (20)
  - Headache [Unknown]
  - Inappropriate schedule of drug administration [Unknown]
  - Fluid retention [Not Recovered/Not Resolved]
  - Abdominal distension [Recovering/Resolving]
  - Cardiac arrest [Fatal]
  - Chest discomfort [Unknown]
  - Influenza [Unknown]
  - Rhinorrhoea [Unknown]
  - Weight increased [Unknown]
  - Skin discolouration [Not Recovered/Not Resolved]
  - Peripheral swelling [Recovering/Resolving]
  - Prescribed underdose [Unknown]
  - Cardiomyopathy [Fatal]
  - Hypoaesthesia [Not Recovered/Not Resolved]
  - Cardiac failure congestive [Unknown]
  - Contraindicated product administered [Unknown]
  - Skin ulcer [Unknown]
  - Productive cough [Unknown]
  - Cough [Unknown]
  - Dyspnoea [Unknown]

NARRATIVE: CASE EVENT DATE: 201706
